FAERS Safety Report 24732640 (Version 1)
Quarter: 2024Q4

REPORT INFORMATION
  Report Type: Spontaneous
  Country: US (occurrence: None)
  Receive Date: 20241213
  Receipt Date: 20241213
  Transmission Date: 20250115
  Serious: Yes (Other)
  Sender: Public
  Company Number: None

PATIENT
  Age: 76 Year
  Sex: Female

DRUGS (2)
  1. METOPROLOL SUCCINATE [Suspect]
     Active Substance: METOPROLOL SUCCINATE
     Dosage: 25 MG DAILY ORAL
     Route: 048
     Dates: start: 20241202, end: 20241211
  2. FAMOTIDINE [Suspect]
     Active Substance: FAMOTIDINE
     Dosage: 20 MG DAILY
     Dates: start: 20241202, end: 20241211

REACTIONS (7)
  - Drug dispensed to wrong patient [None]
  - Wrong patient received product [None]
  - Wrong product administered [None]
  - Dizziness [None]
  - Hyperhidrosis [None]
  - Dizziness [None]
  - Presyncope [None]

NARRATIVE: CASE EVENT DATE: 20241211
